FAERS Safety Report 12087791 (Version 1)
Quarter: 2016Q1

REPORT INFORMATION
  Report Type: Spontaneous
  Country: US (occurrence: US)
  Receive Date: 20160217
  Receipt Date: 20160217
  Transmission Date: 20160526
  Serious: No
  Sender: FDA-Public Use
  Company Number: US-ALLERGAN-1520170US

PATIENT
  Age: 82 Year
  Sex: Female

DRUGS (14)
  1. LAMOTRIGINE. [Concomitant]
     Active Substance: LAMOTRIGINE
  2. RESTASIS [Suspect]
     Active Substance: CYCLOSPORINE
     Indication: DRY EYE
  3. NUVIGIL [Concomitant]
     Active Substance: ARMODAFINIL
  4. DULCOLAX (BISACODYL) [Concomitant]
     Active Substance: BISACODYL
  5. IPRATROPIUM [Concomitant]
     Active Substance: IPRATROPIUM
  6. NAMENDA [Concomitant]
     Active Substance: MEMANTINE HYDROCHLORIDE
  7. FUROSEMIDE. [Concomitant]
     Active Substance: FUROSEMIDE
  8. TRAMADOL. [Concomitant]
     Active Substance: TRAMADOL
  9. MUCINEX [Concomitant]
     Active Substance: GUAIFENESIN
  10. OMEGA 3                            /01333901/ [Concomitant]
     Active Substance: FISH OIL\TOCOPHEROL
  11. RESTASIS [Suspect]
     Active Substance: CYCLOSPORINE
     Indication: DRY EYE
     Dosage: UNK
     Route: 047
     Dates: start: 201509
  12. LORATADINE. [Concomitant]
     Active Substance: LORATADINE
  13. IBUPROFEN. [Concomitant]
     Active Substance: IBUPROFEN
  14. EXELON [Concomitant]
     Active Substance: RIVASTIGMINE TARTRATE

REACTIONS (2)
  - Punctate keratitis [Not Recovered/Not Resolved]
  - Drug ineffective [Unknown]

NARRATIVE: CASE EVENT DATE: 201509
